FAERS Safety Report 9538642 (Version 1)
Quarter: 2013Q2

REPORT INFORMATION
  Report Type: Spontaneous
  Country: US (occurrence: None)
  Receive Date: 20130517
  Receipt Date: 20130517
  Transmission Date: 20140414
  Serious: No
  Sender: FDA-Public Use
  Company Number: 1000043782

PATIENT
  Sex: Male

DRUGS (1)
  1. VIIBRYD (VILAZODONE HYDROCHLORIDE) [Suspect]

REACTIONS (9)
  - Irritability [None]
  - Depression [None]
  - Unevaluable event [None]
  - Depressed mood [None]
  - Anxiety [None]
  - Premature ejaculation [None]
  - Poor quality sleep [None]
  - Erectile dysfunction [None]
  - Energy increased [None]
